FAERS Safety Report 9478314 (Version 1)
Quarter: 2013Q3

REPORT INFORMATION
  Report Type: Spontaneous
  Country: ES (occurrence: ES)
  Receive Date: 20130827
  Receipt Date: 20130827
  Transmission Date: 20140515
  Serious: Yes (Other)
  Sender: FDA-Public Use
  Company Number: ES-UCBSA-096014

PATIENT
  Age: 50 Year
  Sex: Male

DRUGS (3)
  1. KEPPRA [Suspect]
     Indication: EPILEPSY
     Dates: start: 2010, end: 2012
  2. PEGYLATED INTERFERON ALFA-2A [Concomitant]
     Indication: CHRONIC HEPATITIS C
     Dates: start: 2010, end: 2012
  3. RIBAVIRIN [Concomitant]
     Indication: CHRONIC HEPATITIS C
     Dates: start: 2010, end: 2012

REACTIONS (2)
  - Thrombocytopenia [Unknown]
  - Leukopenia [Unknown]
